FAERS Safety Report 8107341-5 (Version None)
Quarter: 2011Q4

REPORT INFORMATION
  Report Type: 
  Country: None (occurrence: None)
  Receive Date: 20111223
  Receipt Date: 20110825
  Transmission Date: 20120403
  Serious: Yes (Other)
  Sender: FDA-Public Use
  Company Number: PHHY2011US58363

PATIENT
  Age: 42 Year
  Sex: Male
  Weight: 158 kg

DRUGS (5)
  1. VYTORIN [Concomitant]
  2. LOPID [Concomitant]
  3. CLOZARIL [Suspect]
  4. PREVACID [Concomitant]
  5. GLIZIPIDE (GLIPIZIDE) [Concomitant]

REACTIONS (4)
  - RED BLOOD CELL COUNT DECREASED [None]
  - HAEMATOCRIT DECREASED [None]
  - HAEMOGLOBIN DECREASED [None]
  - WHITE BLOOD CELL COUNT INCREASED [None]
